FAERS Safety Report 16945852 (Version 1)
Quarter: 2019Q4

REPORT INFORMATION
  Report Type: Spontaneous
  Country: US (occurrence: US)
  Receive Date: 20191021
  Receipt Date: 20191021
  Transmission Date: 20200122
  Serious: Yes (Disabling)
  Sender: FDA-Public Use
  Company Number: None

PATIENT
  Age: 28 Year
  Sex: Female
  Weight: 49.5 kg

DRUGS (1)
  1. AIMOVIG [Suspect]
     Active Substance: ERENUMAB-AOOE
     Indication: MIGRAINE
     Dosage: ?          QUANTITY:1 INJECTION(S);OTHER FREQUENCY:EVERY 28 DAYS;?
     Route: 058
     Dates: start: 20190808

REACTIONS (5)
  - Chills [None]
  - Influenza like illness [None]
  - Swelling [None]
  - Tenderness [None]
  - Arthralgia [None]

NARRATIVE: CASE EVENT DATE: 20191021
